FAERS Safety Report 9371529 (Version 4)
Quarter: 2013Q3

REPORT INFORMATION
  Report Type: Spontaneous
  Country: GB (occurrence: GB)
  Receive Date: 20130627
  Receipt Date: 20130723
  Transmission Date: 20140515
  Serious: Yes (Other)
  Sender: FDA-Public Use
  Company Number: GB-ASTELLAS-2013US006647

PATIENT
  Age: 75 Year
  Sex: Female

DRUGS (4)
  1. RAPISCAN [Suspect]
     Indication: SCAN MYOCARDIAL PERFUSION
     Dosage: 400 UG, TOTAL DOSE
     Route: 042
     Dates: start: 20130318, end: 20130318
  2. ASPIRIN [Concomitant]
     Indication: ANTI-PLATELET ANTIBODY
     Dosage: 75 MG, UID/QD
     Route: 048
  3. QUININE SULPHATE [Concomitant]
     Indication: MUSCLE SPASMS
     Dosage: 300 MG, AT NIGHT
     Route: 048
  4. THYROXINE [Concomitant]
     Indication: HYPOTHYROIDISM
     Dosage: 75 MG, UID/QD

REACTIONS (1)
  - Post herpetic neuralgia [Recovering/Resolving]
